FAERS Safety Report 20159608 (Version 3)
Quarter: 2022Q1

REPORT INFORMATION
  Report Type: Report from Study
  Country: BR (occurrence: BR)
  Receive Date: 20211208
  Receipt Date: 20220225
  Transmission Date: 20220424
  Serious: Yes (Disabling, Other)
  Sender: FDA-Public Use
  Company Number: BR-NOVARTISPH-NVSC2021BR276557

PATIENT
  Age: 69 Year
  Sex: Female

DRUGS (2)
  1. COSENTYX [Suspect]
     Active Substance: SECUKINUMAB
     Indication: Ankylosing spondylitis
     Dosage: 150 MG, UNKNOWN
     Route: 065
     Dates: start: 202001
  2. COSENTYX [Suspect]
     Active Substance: SECUKINUMAB
     Dosage: UNK
     Route: 065
     Dates: start: 202109

REACTIONS (9)
  - Paralysis [Unknown]
  - Movement disorder [Recovered/Resolved]
  - Spinal cord compression [Unknown]
  - Gait disturbance [Unknown]
  - Hypokinesia [Unknown]
  - Lordosis [Unknown]
  - Head discomfort [Unknown]
  - Memory impairment [Unknown]
  - Hypoaesthesia [Unknown]

NARRATIVE: CASE EVENT DATE: 20210601
